FAERS Safety Report 7062028-5 (Version None)
Quarter: 2010Q4

REPORT INFORMATION
  Report Type: 
  Country: None (occurrence: None)
  Receive Date: 20101026
  Receipt Date: 20101020
  Transmission Date: 20110411
  Serious: Yes (Hospitalization, Disabling)
  Sender: FDA-Public Use
  Company Number: A0799980A

PATIENT
  Age: 43 Year
  Sex: Male

DRUGS (1)
  1. AVANDIA [Suspect]
     Indication: DIABETES MELLITUS
     Dosage: 8MG PER DAY
     Route: 048
     Dates: end: 20060716

REACTIONS (9)
  - ANXIETY [None]
  - ARTERIAL OCCLUSIVE DISEASE [None]
  - GALLBLADDER OPERATION [None]
  - HEART INJURY [None]
  - MASTECTOMY [None]
  - MYOCARDIAL INFARCTION [None]
  - RECTAL FISSURE [None]
  - STRESS [None]
  - TREATMENT NONCOMPLIANCE [None]
